FAERS Safety Report 18781238 (Version 1)
Quarter: 2021Q1

REPORT INFORMATION
  Report Type: Spontaneous
  Country: US (occurrence: US)
  Receive Date: 20210124
  Receipt Date: 20210124
  Transmission Date: 20210419
  Serious: Yes (Hospitalization)
  Sender: FDA-Public Use
  Company Number: None

PATIENT
  Age: 80 Year
  Sex: Female
  Weight: 69.75 kg

DRUGS (5)
  1. DICLOFENAC SODIUM. [Concomitant]
     Active Substance: DICLOFENAC SODIUM
     Dates: start: 20201221, end: 20210120
  2. TRAMADOL. [Concomitant]
     Active Substance: TRAMADOL
     Dates: start: 20200617
  3. RYBELSUS [Suspect]
     Active Substance: SEMAGLUTIDE
  4. WARFARIN [Suspect]
     Active Substance: WARFARIN
     Indication: ATRIAL FIBRILLATION
     Route: 048
     Dates: start: 20150715
  5. RYBELSUS [Concomitant]
     Active Substance: SEMAGLUTIDE
     Dates: start: 20201222, end: 20210113

REACTIONS (12)
  - Polyp [None]
  - International normalised ratio increased [None]
  - Haemoglobin decreased [None]
  - Lower gastrointestinal haemorrhage [None]
  - Self-medication [None]
  - Decreased appetite [None]
  - Anticoagulation drug level below therapeutic [None]
  - Haematochezia [None]
  - Nausea [None]
  - Haemorrhoidal haemorrhage [None]
  - Asthenia [None]
  - Haemorrhoids [None]

NARRATIVE: CASE EVENT DATE: 20210113
